FAERS Safety Report 11308348 (Version 2)
Quarter: 2015Q4

REPORT INFORMATION
  Report Type: Spontaneous
  Country: US (occurrence: US)
  Receive Date: 20150724
  Receipt Date: 20151214
  Transmission Date: 20160304
  Serious: Yes (Hospitalization)
  Sender: FDA-Public Use
  Company Number: US-BAYER-2015-380259

PATIENT
  Age: 30 Year
  Sex: Female
  Weight: 68.27 kg

DRUGS (1)
  1. MIRENA [Suspect]
     Active Substance: LEVONORGESTREL
     Indication: CONTRACEPTION
     Dosage: 20 MG/24HR, CONT
     Route: 015
     Dates: start: 20120517, end: 20130120

REACTIONS (4)
  - Pyrexia [None]
  - Pelvic pain [None]
  - Streptococcal sepsis [None]
  - Abdominal pain lower [None]

NARRATIVE: CASE EVENT DATE: 201301
